FAERS Safety Report 6135821-0 (Version None)
Quarter: 2009Q1

REPORT INFORMATION
  Report Type: 
  Country: None (occurrence: None)
  Receive Date: 20090327
  Receipt Date: 20090324
  Transmission Date: 20090719
  Serious: Yes (Death, Hospitalization)
  Sender: FDA-Public Use
  Company Number: JP-B.I. PHARMACEUTICALS,INC./RIDGEFIELD-2008-BP-13784NB

PATIENT
  Sex: Male
  Weight: 60 kg

DRUGS (17)
  1. HARNAL [Suspect]
     Indication: BENIGN PROSTATIC HYPERPLASIA
     Dosage: .2MG
     Route: 048
     Dates: end: 20080318
  2. LENDORMIN D TABLETS [Suspect]
     Indication: INSOMNIA
     Dosage: .5MG
     Route: 048
     Dates: start: 20060601, end: 20080317
  3. SOLANAX [Suspect]
     Indication: INSOMNIA
     Dosage: 2.4MG
     Route: 048
     Dates: start: 20060601, end: 20080301
  4. SOLANAX [Suspect]
     Indication: DEPRESSION
  5. TOLEDOMIN [Suspect]
     Indication: INSOMNIA
     Dosage: 200MG
     Route: 048
     Dates: start: 20060601, end: 20080301
  6. TOLEDOMIN [Suspect]
     Indication: DEPRESSION
  7. TETRAMIDE [Suspect]
     Indication: INSOMNIA
     Dosage: 60MG
     Route: 048
     Dates: start: 20060601, end: 20080301
  8. TETRAMIDE [Suspect]
     Indication: DEPRESSION
  9. MYSLEE [Suspect]
     Indication: INSOMNIA
     Dosage: 5MG
     Route: 048
     Dates: start: 20060601, end: 20080318
  10. MYSLEE [Suspect]
     Indication: DEPRESSION
  11. DEPAS [Suspect]
     Indication: INSOMNIA
     Dosage: 1MG
     Route: 048
     Dates: start: 20060601, end: 20080301
  12. DEPAS [Suspect]
     Indication: DEPRESSION
  13. ZOLOFT [Suspect]
     Indication: INSOMNIA
     Dosage: 100MG
     Route: 048
     Dates: start: 20071001, end: 20080301
  14. ZOLOFT [Suspect]
     Indication: DEPRESSION
  15. ZEFIX [Concomitant]
     Route: 048
  16. LASIX [Concomitant]
     Route: 065
  17. TAKEPRON [Concomitant]
     Route: 065

REACTIONS (3)
  - ASCITES [None]
  - HEPATIC NEOPLASM MALIGNANT [None]
  - HEPATITIS FULMINANT [None]
